FAERS Safety Report 16660197 (Version 2)
Quarter: 2019Q3

REPORT INFORMATION
  Report Type: Spontaneous
  Country: US (occurrence: US)
  Receive Date: 20190802
  Receipt Date: 20190905
  Transmission Date: 20191004
  Serious: Yes (Hospitalization, Other)
  Sender: FDA-Public Use
  Company Number: US-ACCORD-150043

PATIENT
  Age: 53 Year
  Sex: Female

DRUGS (5)
  1. ACETYLSALICYLIC ACID [Concomitant]
     Active Substance: ASPIRIN
  2. SERTRALINE [Concomitant]
     Active Substance: SERTRALINE HYDROCHLORIDE
  3. ATORVASTATIN/ATORVASTATIN CALCIUM [Suspect]
     Active Substance: ATORVASTATIN CALCIUM
     Indication: PRODUCT USED FOR UNKNOWN INDICATION
     Dosage: HIGH-INTENSITY STATIN FOR THE PAST YEAR WITHOUT ANY RECENT DOSAGE CHANGES
     Route: 048
  4. METFORMIN [Concomitant]
     Active Substance: METFORMIN HYDROCHLORIDE
  5. GLIBENCLAMIDE [Concomitant]
     Active Substance: GLYBURIDE

REACTIONS (2)
  - Autoimmune myositis [Recovering/Resolving]
  - Necrotising myositis [Recovering/Resolving]
